FAERS Safety Report 9776829 (Version 2)
Quarter: 2014Q2

REPORT INFORMATION
  Report Type: Report from Study
  Country: DE (occurrence: DE)
  Receive Date: 20131221
  Receipt Date: 20140522
  Transmission Date: 20141212
  Serious: No
  Sender: FDA-Public Use
  Company Number: PHHY2013DE147673

PATIENT
  Sex: Female
  Weight: 68 kg

DRUGS (7)
  1. AMN107 [Suspect]
     Indication: CHRONIC MYELOID LEUKAEMIA
     Dosage: 300 MG, PER DAY
     Route: 048
     Dates: start: 20120104
  2. AMN107 [Suspect]
     Dosage: 150 MG, UNK
     Route: 048
     Dates: start: 20121023
  3. AMN107 [Suspect]
     Dosage: 150 MG, UNK
     Route: 048
     Dates: start: 20121113
  4. AMN107 [Suspect]
     Dosage: 300 MG,
     Route: 048
     Dates: start: 20130319
  5. AMN107 [Suspect]
     Dosage: 150 MG, UNK
     Route: 048
     Dates: start: 20131022
  6. AMN107 [Suspect]
     Dosage: 300 MG, UNK
     Route: 048
     Dates: start: 20140325
  7. AMITRIPTYLIN [Concomitant]
     Dates: start: 20121023

REACTIONS (2)
  - Pain in extremity [Not Recovered/Not Resolved]
  - Arthralgia [Not Recovered/Not Resolved]
